FAERS Safety Report 4705170-3 (Version None)
Quarter: 2005Q3

REPORT INFORMATION
  Report Type: 
  Country: None (occurrence: None)
  Receive Date: 20050701
  Receipt Date: 20050113
  Transmission Date: 20060218
  Serious: Yes (Other)
  Sender: FDA-Public Use
  Company Number: US-MERCK-0501USA02752

PATIENT
  Age: 15 Year
  Sex: Male

DRUGS (12)
  1. ELSPAR [Suspect]
     Indication: NON-HODGKIN'S LYMPHOMA
     Route: 030
  2. ELSPAR [Suspect]
     Route: 030
  3. ELSPAR [Suspect]
     Route: 030
  4. ELSPAR [Suspect]
     Route: 030
  5. ELSPAR [Suspect]
     Indication: BONE MARROW LEUKAEMIC CELL INFILTRATION
     Route: 030
  6. ELSPAR [Suspect]
     Route: 030
  7. ELSPAR [Suspect]
     Route: 030
  8. ELSPAR [Suspect]
     Route: 030
  9. MERCAPTOPURINE [Concomitant]
     Indication: NON-HODGKIN'S LYMPHOMA
     Route: 065
  10. MERCAPTOPURINE [Concomitant]
     Indication: BONE MARROW LEUKAEMIC CELL INFILTRATION
     Route: 065
  11. METHOTREXATE [Concomitant]
     Indication: NON-HODGKIN'S LYMPHOMA
     Route: 065
  12. METHOTREXATE [Concomitant]
     Indication: BONE MARROW LEUKAEMIC CELL INFILTRATION
     Route: 065

REACTIONS (3)
  - PANCREAS INFECTION [None]
  - PANCREATIC NECROSIS [None]
  - PANCREATITIS ACUTE [None]
